FAERS Safety Report 6687297-2 (Version None)
Quarter: 2010Q2

REPORT INFORMATION
  Report Type: 
  Country: None (occurrence: None)
  Receive Date: 20100415
  Receipt Date: 20100402
  Transmission Date: 20101027
  Serious: Yes (Death, Hospitalization)
  Sender: FDA-Public Use
  Company Number: 2009AC000286

PATIENT
  Age: 66 Year
  Sex: Male

DRUGS (46)
  1. DIGOXIN [Suspect]
     Dosage: 0.25 MG, QD, PO
     Route: 048
     Dates: start: 20061201
  2. AMIODARONE [Concomitant]
  3. ASPIRIN [Concomitant]
  4. VASOTEC [Concomitant]
  5. LASIX [Concomitant]
  6. ZOCOR [Concomitant]
  7. PREVACID [Concomitant]
  8. PAMELOR [Concomitant]
  9. ALDACTONE [Concomitant]
  10. OXYGEN [Concomitant]
  11. ATROVENT [Concomitant]
  12. XOPENEX [Concomitant]
  13. PACERONE [Concomitant]
  14. LIPITOR [Concomitant]
  15. ULTRAM [Concomitant]
  16. NEXIUM [Concomitant]
  17. VALIUM [Concomitant]
  18. ZESTRIL [Concomitant]
  19. NORTRIPTYLINE HCL [Concomitant]
  20. NAPROXEN [Concomitant]
  21. PROPULSID [Concomitant]
  22. ATIVAN [Concomitant]
  23. HEPARIN [Concomitant]
  24. PLAVIX [Concomitant]
  25. M.V.I. [Concomitant]
  26. LEVAQUIN [Concomitant]
  27. ENALAPRIL MALEATE [Concomitant]
  28. DOCUSATE [Concomitant]
  29. VICODIN [Concomitant]
  30. IBUPROFEN [Concomitant]
  31. POTASSIUM CHLORIDE [Concomitant]
  32. VITAMIN E [Concomitant]
  33. FOLIC ACID [Concomitant]
  34. SPIRVA [Concomitant]
  35. ATROVENT [Concomitant]
  36. ROCEPHIN [Concomitant]
  37. BIAXIN [Concomitant]
  38. FACTIVE [Concomitant]
  39. PREDNISONE [Concomitant]
  40. HUMIBID [Concomitant]
  41. SINGULAIR [Concomitant]
  42. DUONEB [Concomitant]
  43. DOXYCYCLINE [Concomitant]
  44. LORTAB [Concomitant]
  45. ROXANOL [Concomitant]
  46. ZOSYN [Concomitant]

REACTIONS (52)
  - ALCOHOL ABUSE [None]
  - AMAUROSIS FUGAX [None]
  - ANXIETY [None]
  - AORTIC CALCIFICATION [None]
  - AORTIC STENOSIS [None]
  - AORTIC VALVE INCOMPETENCE [None]
  - ASCITES [None]
  - BLINDNESS TRANSIENT [None]
  - BLOOD GLUCOSE INCREASED [None]
  - BRADYCARDIA [None]
  - BRONCHITIS [None]
  - BUNDLE BRANCH BLOCK LEFT [None]
  - CARDIAC FAILURE CONGESTIVE [None]
  - CARDIOACTIVE DRUG LEVEL ABOVE THERAPEUTIC [None]
  - CAROTID ARTERIOSCLEROSIS [None]
  - CATARACT [None]
  - CHEST PAIN [None]
  - CHRONIC OBSTRUCTIVE PULMONARY DISEASE [None]
  - CLUBBING [None]
  - CONDITION AGGRAVATED [None]
  - CONDUCTION DISORDER [None]
  - CONFUSIONAL STATE [None]
  - ECONOMIC PROBLEM [None]
  - GASTROOESOPHAGEAL REFLUX DISEASE [None]
  - HAEMOPTYSIS [None]
  - HIATUS HERNIA [None]
  - HYPERTENSION [None]
  - HYPERTHYROIDISM [None]
  - HYPONATRAEMIA [None]
  - HYPOTENSION [None]
  - ILEUS PARALYTIC [None]
  - INAPPROPRIATE SCHEDULE OF DRUG ADMINISTRATION [None]
  - LEFT VENTRICULAR HYPERTROPHY [None]
  - LOBAR PNEUMONIA [None]
  - LOSS OF CONSCIOUSNESS [None]
  - MALNUTRITION [None]
  - MITRAL VALVE INCOMPETENCE [None]
  - MULTIPLE INJURIES [None]
  - PULMONARY OEDEMA [None]
  - RENAL FAILURE ACUTE [None]
  - RESPIRATORY ARREST [None]
  - RETINAL VEIN OCCLUSION [None]
  - RHEUMATIC HEART DISEASE [None]
  - SCAR [None]
  - SINUS ARRHYTHMIA [None]
  - SINUS BRADYCARDIA [None]
  - SURGERY [None]
  - SYNCOPE [None]
  - THERAPEUTIC AGENT TOXICITY [None]
  - UNEVALUABLE EVENT [None]
  - VISUAL IMPAIRMENT [None]
  - WEIGHT DECREASED [None]
